FAERS Safety Report 8278292-0 (Version None)
Quarter: 2012Q2

REPORT INFORMATION
  Report Type: 
  Country: None (occurrence: None)
  Receive Date: 20120412
  Receipt Date: 20120203
  Transmission Date: 20120825
  Serious: No
  Sender: FDA-Public Use
  Company Number: US-ASTRAZENECA-2012SE07663

PATIENT
  Age: 48 Year
  Sex: Female
  Weight: 54.4 kg

DRUGS (1)
  1. NEXIUM [Suspect]
     Indication: GASTROOESOPHAGEAL REFLUX DISEASE
     Route: 048

REACTIONS (5)
  - CHEST PAIN [None]
  - THYROID DISORDER [None]
  - BLOOD CHOLESTEROL INCREASED [None]
  - GASTRIC DISORDER [None]
  - DRUG DOSE OMISSION [None]
